FAERS Safety Report 5461088-2 (Version None)
Quarter: 2007Q3

REPORT INFORMATION
  Report Type: 
  Country: None (occurrence: None)
  Receive Date: 20070918
  Receipt Date: 20070918
  Transmission Date: 20080115
  Serious: No
  Sender: FDA-Public Use
  Company Number: None

PATIENT
  Age: 64 Year
  Sex: Male

DRUGS (1)
  1. OXALIPLATIN [Suspect]
     Indication: COLON CANCER
     Dosage: 90 MG ONCE IV
     Route: 042
     Dates: start: 20070702, end: 20070828

REACTIONS (1)
  - NEUROPATHY PERIPHERAL [None]
